FAERS Safety Report 5487309-8 (Version None)
Quarter: 2007Q4

REPORT INFORMATION
  Report Type: 
  Country: None (occurrence: None)
  Receive Date: 20071016
  Receipt Date: 20070619
  Transmission Date: 20080405
  Serious: Yes (Hospitalization)
  Sender: FDA-Public Use
  Company Number: JP-MERCK-0709USA03503

PATIENT
  Age: 76 Year
  Sex: Female

DRUGS (5)
  1. PEPCID RPD [Suspect]
     Route: 048
  2. FUROSEMIDE [Concomitant]
     Route: 065
  3. ALLOPURINOL [Concomitant]
     Route: 065
  4. CORTICOSTEROIDS (UNSPECIFIED) [Concomitant]
     Route: 048
  5. EPOETIN BETA [Concomitant]
     Route: 042

REACTIONS (1)
  - TOXIC SKIN ERUPTION [None]
